FAERS Safety Report 16196626 (Version 3)
Quarter: 2021Q1

REPORT INFORMATION
  Report Type: Spontaneous
  Country: CA (occurrence: CA)
  Receive Date: 20190415
  Receipt Date: 20210120
  Transmission Date: 20210419
  Serious: Yes (Congenital Anomaly, Other)
  Sender: FDA-Public Use
  Company Number: CA-APOTEX-2019AP012018

PATIENT

DRUGS (1)
  1. PAXIL [Suspect]
     Active Substance: PAROXETINE HYDROCHLORIDE
     Indication: OBSESSIVE-COMPULSIVE DISORDER
     Dosage: UNK
     Route: 064

REACTIONS (10)
  - Scaphocephaly [Unknown]
  - Speech disorder developmental [Unknown]
  - Limb deformity [Unknown]
  - Foetal exposure during pregnancy [Unknown]
  - Hydronephrosis [Unknown]
  - Hydroureter [Unknown]
  - Hypospadias [Unknown]
  - Syndactyly [Unknown]
  - Pelvi-ureteric obstruction [Unknown]
  - Polydactyly [Unknown]
